FAERS Safety Report 7547120-0 (Version None)
Quarter: 2011Q2

REPORT INFORMATION
  Report Type: 
  Country: None (occurrence: None)
  Receive Date: 20110524
  Receipt Date: 20110128
  Transmission Date: 20111010
  Serious: No
  Sender: FDA-Public Use
  Company Number: 026536

PATIENT
  Sex: Female
  Weight: 59 kg

DRUGS (6)
  1. XANAX [Concomitant]
  2. VITAMIN D [Concomitant]
  3. DIGESTIVES, INCL ENZYMES [Concomitant]
  4. PROTONIX [Concomitant]
  5. WELLBUTRIN [Concomitant]
  6. CIMZIA [Suspect]
     Indication: CROHN'S DISEASE
     Dosage: (400 MG 1X/MONTH SUBCUTANEOUS)
     Route: 058
     Dates: start: 20100201

REACTIONS (1)
  - CONTUSION [None]
